FAERS Safety Report 16759798 (Version 2)
Quarter: 2019Q3

REPORT INFORMATION
  Report Type: Spontaneous
  Country: US (occurrence: US)
  Receive Date: 20190830
  Receipt Date: 20190927
  Transmission Date: 20191005
  Serious: Yes (Other)
  Sender: FDA-Public Use
  Company Number: US-BAYER-2019-156219

PATIENT
  Age: 63 Year
  Sex: Male

DRUGS (2)
  1. XOFIGO [Suspect]
     Active Substance: RADIUM RA-223 DICHLORIDE
     Indication: METASTASES TO BONE
     Dosage: 106 MCI, ONCE
     Route: 042
     Dates: start: 20190611, end: 20190611
  2. XOFIGO [Suspect]
     Active Substance: RADIUM RA-223 DICHLORIDE
     Indication: HORMONE-REFRACTORY PROSTATE CANCER
     Dosage: 108 MCI, ONCE
     Route: 042
     Dates: start: 20190430, end: 20190430

REACTIONS (3)
  - Lumbar vertebral fracture [None]
  - Spinal cord compression [None]
  - Hormone-refractory prostate cancer [None]

NARRATIVE: CASE EVENT DATE: 20190624
